FAERS Safety Report 11623734 (Version 1)
Quarter: 2015Q4

REPORT INFORMATION
  Report Type: Spontaneous
  Country: US (occurrence: US)
  Receive Date: 20151013
  Receipt Date: 20151013
  Transmission Date: 20160304
  Serious: No
  Sender: FDA-Public Use
  Company Number: US-JNJFOC-20150816729

PATIENT
  Age: 64 Year
  Sex: Female
  Weight: 85.73 kg

DRUGS (10)
  1. WOMENS ROGAINE UNSCENTED [Suspect]
     Active Substance: MINOXIDIL
     Route: 061
  2. SYNTHROID [Concomitant]
     Active Substance: LEVOTHYROXINE SODIUM
     Indication: THYROID DISORDER
     Dosage: 9 MONTHS
     Route: 065
  3. CHLOROXYGEN [Concomitant]
     Indication: PROPHYLAXIS
     Dosage: 5 YEARS
     Route: 065
  4. WOMENS ROGAINE UNSCENTED [Suspect]
     Active Substance: MINOXIDIL
     Indication: ALOPECIA
     Dosage: HALF A CAPFUL
     Route: 061
     Dates: start: 20150708
  5. PREMARIN [Concomitant]
     Active Substance: ESTROGENS, CONJUGATED
     Indication: BLOOD OESTROGEN
     Dosage: 35 YEARS
     Route: 065
  6. FISH OIL [Concomitant]
     Active Substance: FISH OIL
     Indication: ROUTINE HEALTH MAINTENANCE
     Dosage: 2 CAPS, 10 YEARS
     Route: 065
  7. ANTIOXIDANT HERBAL SUPPLEMENT [Concomitant]
     Indication: EYE DISORDER
     Route: 065
  8. VITAMIN C [Concomitant]
     Active Substance: ASCORBIC ACID
     Indication: ROUTINE HEALTH MAINTENANCE
     Dosage: 6 MONTHS
     Route: 065
  9. VITA-LEA [Concomitant]
     Indication: UNEVALUABLE EVENT
     Dosage: 23 YEARS
     Route: 065
  10. VITAMIN D [Concomitant]
     Active Substance: CHOLECALCIFEROL
     Indication: BLOOD CALCIUM
     Dosage: 1 YEAR
     Route: 065

REACTIONS (2)
  - Alopecia [Unknown]
  - Product use issue [Unknown]
